FAERS Safety Report 9176527 (Version 1)
Quarter: 2013Q1

REPORT INFORMATION
  Report Type: Spontaneous
  Country: US (occurrence: None)
  Receive Date: 20130320
  Receipt Date: 20130320
  Transmission Date: 20140127
  Serious: Yes (Hospitalization)
  Sender: FDA-Public Use
  Company Number: None

PATIENT
  Sex: Female
  Weight: 57.61 kg

DRUGS (14)
  1. GEMCITABINE [Suspect]
  2. OXALIPLATIN [Suspect]
  3. PROMETHAZINE [Concomitant]
  4. PROCHLORPERAZINE MALEATE [Concomitant]
  5. LISINOPRIL [Concomitant]
  6. SYMBICORT [Concomitant]
  7. SPIRIVA [Concomitant]
  8. OXYGEN 2 LITERS [Concomitant]
  9. METOCLOPRAMIDE [Concomitant]
  10. MIRTAZAPINE [Concomitant]
  11. LORAZEPAM [Concomitant]
  12. TYLENOL [Concomitant]
  13. AMLODIPINE [Concomitant]
  14. BENZONATATE [Concomitant]

REACTIONS (3)
  - Neuropathy peripheral [None]
  - Pneumonia [None]
  - Chronic obstructive pulmonary disease [None]
